FAERS Safety Report 5674726-6 (Version None)
Quarter: 2008Q1

REPORT INFORMATION
  Report Type: 
  Country: None (occurrence: None)
  Receive Date: 20080320
  Receipt Date: 20070806
  Transmission Date: 20080703
  Serious: Yes (Hospitalization)
  Sender: FDA-Public Use
  Company Number: US-BRISTOL-MYERS SQUIBB COMPANY-14119366

PATIENT
  Age: 72 Year
  Sex: Male
  Weight: 71 kg

DRUGS (10)
  1. CETUXIMAB [Suspect]
     Indication: NON-SMALL CELL LUNG CANCER METASTATIC
     Dosage: INITIAL DOSE-800MG ON 27FEB07; 500MG UNK-06MAR07;485MG 20MAR07-17APR07; 475MG 01MAY07-08MAY07.
     Route: 042
     Dates: start: 20070501, end: 20070508
  2. DOCETAXEL [Suspect]
     Indication: NON-SMALL CELL LUNG CANCER METASTATIC
     Dosage: INITIAL DOSE-150MG; 145MG 20MAR07-10APR07.
     Route: 042
     Dates: start: 20070501, end: 20070501
  3. CALCIUM CARBONATE [Concomitant]
     Route: 048
  4. FUROSEMIDE [Concomitant]
     Indication: OEDEMA
     Dates: start: 20060901
  5. ENOXAPARIN SODIUM [Concomitant]
     Indication: THROMBOSIS PROPHYLAXIS
     Route: 058
     Dates: start: 20070401
  6. TERAZOSIN HCL [Concomitant]
     Indication: BENIGN PROSTATIC HYPERPLASIA
  7. CITALOPRAM HYDROBROMIDE [Concomitant]
     Indication: DEPRESSION
  8. DOCUSATE [Concomitant]
     Indication: CONSTIPATION
     Dates: start: 20061218, end: 20070501
  9. CALCITONIN SALMON [Concomitant]
     Indication: BONE PAIN
     Dosage: DOSE TAKEN AS 15 SPRAY QD AND 200IU Q30D
     Route: 055
  10. BISACODYL [Concomitant]
     Indication: CONSTIPATION
     Dates: start: 20061025, end: 20070501

REACTIONS (1)
  - COLITIS [None]
